FAERS Safety Report 12120504 (Version 2)
Quarter: 2016Q2

REPORT INFORMATION
  Report Type: Spontaneous
  Country: BR (occurrence: BR)
  Receive Date: 20160226
  Receipt Date: 20160413
  Transmission Date: 20160815
  Serious: Yes (Other)
  Sender: FDA-Public Use
  Company Number: BR-ABBVIE-16P-020-1569427-00

PATIENT
  Age: 42 Year
  Sex: Male
  Weight: 88 kg

DRUGS (6)
  1. CLONAZEPAM. [Concomitant]
     Active Substance: CLONAZEPAM
     Indication: ANXIETY
  2. DEPAKENE [Suspect]
     Active Substance: VALPROIC ACID
     Indication: ALCOHOLISM
     Route: 048
     Dates: start: 2009, end: 20121105
  3. CLONAZEPAM. [Concomitant]
     Active Substance: CLONAZEPAM
     Indication: SLEEP DISORDER THERAPY
     Dosage: AT NIGHT
     Route: 048
     Dates: start: 2008
  4. CLONAZEPAM. [Concomitant]
     Active Substance: CLONAZEPAM
     Indication: NERVOUSNESS
  5. HALDOL [Concomitant]
     Active Substance: HALOPERIDOL
     Indication: ALCOHOLISM
     Dates: start: 2006
  6. DEPAKENE [Suspect]
     Active Substance: VALPROIC ACID
     Indication: ANXIETY
     Dosage: DAILY DOSE: 600 MG; MORNING AND NIGHT
     Route: 048
     Dates: start: 2011

REACTIONS (13)
  - Tremor [Recovered/Resolved]
  - Abdominal pain [Recovering/Resolving]
  - Malaise [Recovering/Resolving]
  - Blood triglycerides increased [Unknown]
  - Hypertension [Not Recovered/Not Resolved]
  - Angina pectoris [Recovered/Resolved]
  - Blood cholesterol increased [Unknown]
  - Tachycardia [Recovered/Resolved]
  - Rash papular [Recovered/Resolved]
  - Colon neoplasm [Unknown]
  - Liver disorder [Unknown]
  - Expired product administered [Unknown]
  - Intentional product misuse [Unknown]

NARRATIVE: CASE EVENT DATE: 2011
